FAERS Safety Report 6718721-4 (Version None)
Quarter: 2010Q2

REPORT INFORMATION
  Report Type: 
  Country: None (occurrence: None)
  Receive Date: 20100505
  Receipt Date: 20100423
  Transmission Date: 20101027
  Serious: Yes (Hospitalization)
  Sender: FDA-Public Use
  Company Number: UTC-001025

PATIENT
  Age: 85 Year
  Sex: Male
  Weight: 84.9 kg

DRUGS (12)
  1. REMODULIN [Suspect]
     Indication: PULMONARY ARTERIAL HYPERTENSION
     Dosage: 33.12 UG/KG (0.023 UG/KG, 1 IN 1 MIN), SUBUCTANEOUS
     Route: 058
     Dates: start: 20090526
  2. AVODART (DUTASTERIDE) (CAPSULES) [Concomitant]
  3. ALNA (TAMSULOSIN HYDROCHLORIDE) (CAPSULES) [Concomitant]
  4. PANTOLOC (PANTOPRAZOLE) (TABLETS) [Concomitant]
  5. SPIRONO (SPIRONOLACTONE) [Concomitant]
  6. SEDACORON (AMIODARONE HYDROCHLORIDE) (TABLETS) [Concomitant]
  7. AQUAPHORIL (IXPAMIDE) (TABLETS) [Concomitant]
  8. LASIX [Concomitant]
  9. MARCOUMAR (PHENPROCOUMON) (TABLETS) [Concomitant]
  10. UROSIN (ALLOUPRINOL) (TABLETS) [Concomitant]
  11. NERISONA SALBE (DIFLUCORTOLONE VALEATE) (OINTMENT) [Concomitant]
  12. AMIODARONE HCL [Concomitant]

REACTIONS (2)
  - CARDIAC FAILURE [None]
  - PRURITUS GENERALISED [None]
